FAERS Safety Report 10452066 (Version 1)
Quarter: 2014Q3

REPORT INFORMATION
  Report Type: Spontaneous
  Country: US (occurrence: None)
  Receive Date: 20140910
  Receipt Date: 20140910
  Transmission Date: 20150326
  Serious: Yes (Other)
  Sender: FDA-Public Use
  Company Number: PR-AE14-000995

PATIENT
  Sex: Male

DRUGS (2)
  1. BC [Suspect]
     Active Substance: ASPIRIN\CAFFEINE
     Indication: ANALGESIC THERAPY
     Dosage: 1 POWDER
     Route: 048
     Dates: start: 2002
  2. TUMS [Concomitant]
     Active Substance: CALCIUM CARBONATE

REACTIONS (7)
  - Renal failure chronic [None]
  - Renal disorder [None]
  - Vomiting [None]
  - Malaise [None]
  - Decreased appetite [None]
  - Hypertension [None]
  - Renal failure [None]

NARRATIVE: CASE EVENT DATE: 2008
